FAERS Safety Report 11536912 (Version 1)
Quarter: 2015Q3

REPORT INFORMATION
  Report Type: Spontaneous
  Country: US (occurrence: None)
  Receive Date: 20150921
  Receipt Date: 20150921
  Transmission Date: 20151125
  Serious: Yes (Hospitalization)
  Sender: FDA-Public Use
  Company Number: None

PATIENT
  Age: 45 Year
  Sex: Female
  Weight: 61.24 kg

DRUGS (6)
  1. LASIX [Concomitant]
     Active Substance: FUROSEMIDE
  2. FEROCON [Concomitant]
  3. IRON [Suspect]
     Active Substance: IRON
  4. VALSARTAN. [Concomitant]
     Active Substance: VALSARTAN
  5. RECLAST [Suspect]
     Active Substance: ZOLEDRONIC ACID
     Indication: OSTEOPOROSIS
     Route: 042
  6. MULTIVITAMIN [Suspect]
     Active Substance: VITAMINS

REACTIONS (4)
  - Muscle spasms [None]
  - Pain [None]
  - Dyspnoea [None]
  - Body temperature increased [None]

NARRATIVE: CASE EVENT DATE: 20140421
